FAERS Safety Report 15066733 (Version 1)
Quarter: 2018Q2

REPORT INFORMATION
  Report Type: Spontaneous
  Country: HU (occurrence: HU)
  Receive Date: 20180626
  Receipt Date: 20180626
  Transmission Date: 20180711
  Serious: Yes (Disabling, Other)
  Sender: FDA-Public Use
  Company Number: HU-PFIZER INC-2018253574

PATIENT
  Sex: Male

DRUGS (2)
  1. XANAX [Suspect]
     Active Substance: ALPRAZOLAM
     Dosage: UNK
     Route: 065
  2. XEPLION [Suspect]
     Active Substance: PALIPERIDONE PALMITATE
     Route: 030
     Dates: end: 201608

REACTIONS (5)
  - Rash [Unknown]
  - Renal disorder [Unknown]
  - Mastitis [Not Recovered/Not Resolved]
  - Testicular atrophy [Unknown]
  - Sexual dysfunction [Not Recovered/Not Resolved]
